FAERS Safety Report 14260155 (Version 2)
Quarter: 2017Q4

REPORT INFORMATION
  Report Type: Spontaneous
  Country: TW (occurrence: TW)
  Receive Date: 20171207
  Receipt Date: 20171215
  Transmission Date: 20180321
  Serious: Yes (Hospitalization)
  Sender: FDA-Public Use
  Company Number: TW-PFIZER INC-2017517245

PATIENT
  Age: 73 Year
  Sex: Male

DRUGS (13)
  1. LIDOPATCH /00033401/ [Concomitant]
     Dosage: 2 DF, 1X/DAY (QD) (2 PIECE ONCE DAILY)
  2. NORVASC [Concomitant]
     Active Substance: AMLODIPINE BESYLATE
     Indication: HYPERTENSION
     Dosage: 2.5 MG, 1X/DAY (QD)
  3. ULTRACET [Concomitant]
     Active Substance: ACETAMINOPHEN\TRAMADOL HYDROCHLORIDE
     Dosage: 1 DF, 4X/DAY (QID)
  4. INSPRA [Concomitant]
     Active Substance: EPLERENONE
     Dosage: 50 MG, 1X/DAY (QD)
  5. NAPOSIN [Concomitant]
     Dosage: 250 MG, 2X/DAY (BID) AFTER MEAL (PC)
  6. ALLEGRA [Concomitant]
     Active Substance: FEXOFENADINE HYDROCHLORIDE
     Dosage: 60 MG, 2X/DAY (BID)
  7. ACTEIN [Concomitant]
     Dosage: 600 MG, 2X/DAY (BID)
  8. MGO [Concomitant]
     Active Substance: MAGNESIUM OXIDE
     Dosage: 250 MG, 3X/DAY (TID)
  9. PROMETIN /00033002/ [Concomitant]
     Dosage: 5 MG, 3X/DAY (TID) BEFORE MEAL(AC)
  10. SUTENT [Suspect]
     Active Substance: SUNITINIB MALATE
     Indication: GASTROINTESTINAL STROMAL TUMOUR
     Dosage: 12.5MG, 2X/DAY (BID)
     Route: 048
     Dates: start: 20170905, end: 20171127
  11. CERETAL [Concomitant]
     Dosage: 400 MG, 1X/DAY (QD)
  12. LOPID [Concomitant]
     Active Substance: GEMFIBROZIL
     Dosage: 300 MG, 2X/DAY (BID) BEFORE MEAL (AC)
  13. EURICON [Concomitant]
     Dosage: 50 MG, 1X/DAY (QD)

REACTIONS (3)
  - Appendicitis [Recovered/Resolved]
  - Abdominal pain lower [Recovered/Resolved]
  - Pyrexia [Recovered/Resolved]

NARRATIVE: CASE EVENT DATE: 20171127
